FAERS Safety Report 15267951 (Version 1)
Quarter: 2018Q3

REPORT INFORMATION
  Report Type: Spontaneous
  Country: US (occurrence: US)
  Receive Date: 20180725
  Receipt Date: 20180725
  Transmission Date: 20181010
  Serious: Yes (Other)
  Sender: FDA-Public Use
  Company Number: None

PATIENT
  Age: 46 Year
  Sex: Female

DRUGS (10)
  1. KLONOPIN [Concomitant]
     Active Substance: CLONAZEPAM
  2. LEXAPRO [Concomitant]
     Active Substance: ESCITALOPRAM OXALATE
  3. LYRICA [Concomitant]
     Active Substance: PREGABALIN
  4. XTAMPZA ER [Concomitant]
     Active Substance: OXYCODONE
  5. FOLIC ACID. [Concomitant]
     Active Substance: FOLIC ACID
  6. LONSURF [Suspect]
     Active Substance: TIPIRACIL HYDROCHLORIDE\TRIFLURIDINE
     Indication: COLON CANCER
     Dosage: ?          OTHER FREQUENCY:QD,ALONG WITH15MG;?
     Route: 048
     Dates: start: 20180620
  7. VITAMIN D3 [Concomitant]
     Active Substance: CHOLECALCIFEROL
  8. LONSURF [Suspect]
     Active Substance: TIPIRACIL HYDROCHLORIDE\TRIFLURIDINE
     Indication: COLON CANCER
     Dosage: ?          OTHER FREQUENCY:QD,ALONG WITH20MG;?
     Route: 048
     Dates: start: 20180620
  9. HYDROCO / APAP [Concomitant]
  10. LOMOTIL [Concomitant]
     Active Substance: ATROPINE SULFATE\DIPHENOXYLATE HYDROCHLORIDE

REACTIONS (2)
  - Blood count abnormal [None]
  - Nausea [None]

NARRATIVE: CASE EVENT DATE: 20180718
